FAERS Safety Report 8803688 (Version 1)
Quarter: 2012Q4

REPORT INFORMATION
  Report Type: 
  Country: GB (occurrence: GB)
  Receive Date: 20120924
  Receipt Date: 20120924
  Transmission Date: 20130627
  Serious: Yes (Other)
  Sender: FDA-Public Use
  Company Number: GB-ELI_LILLY_AND_COMPANY-GB201209003487

PATIENT
  Age: 32 Year
  Sex: Female

DRUGS (1)
  1. CYMBALTA [Suspect]
     Indication: DEPRESSION

REACTIONS (4)
  - Premature menopause [Unknown]
  - Tearfulness [Unknown]
  - Inhibitory drug interaction [Recovered/Resolved]
  - Therapeutic response decreased [Recovered/Resolved]
